FAERS Safety Report 8382844-7 (Version None)
Quarter: 2012Q2

REPORT INFORMATION
  Report Type: 
  Country: None (occurrence: None)
  Receive Date: 20120524
  Receipt Date: 20120514
  Transmission Date: 20120825
  Serious: Yes (Other)
  Sender: FDA-Public Use
  Company Number: CA-JNJFOC-20120512235

PATIENT
  Sex: Female
  Weight: 66.6 kg

DRUGS (9)
  1. METHOTREXATE [Concomitant]
     Route: 065
  2. WELLBUTRIN [Concomitant]
     Route: 065
  3. ATENOLOL [Concomitant]
     Route: 065
  4. ADALAT [Concomitant]
     Route: 065
  5. PANTOPRAZOLE [Concomitant]
     Route: 065
  6. SPIRIVA [Concomitant]
     Route: 065
  7. LISINOPRIL [Concomitant]
     Route: 065
  8. REMICADE [Suspect]
     Indication: CROHN'S DISEASE
     Route: 042
     Dates: start: 20110126
  9. VITAMIN B-12 [Concomitant]
     Route: 065

REACTIONS (2)
  - DEHYDRATION [None]
  - VOMITING [None]
